FAERS Safety Report 17916025 (Version 1)
Quarter: 2020Q2

REPORT INFORMATION
  Report Type: Spontaneous
  Country: US (occurrence: US)
  Receive Date: 20200618
  Receipt Date: 20200618
  Transmission Date: 20200714
  Serious: Yes (Life-Threatening)
  Sender: FDA-Public Use
  Company Number: None

PATIENT
  Sex: Female
  Weight: 75.6 kg

DRUGS (1)
  1. HYDROXYZINE HCL [Suspect]
     Active Substance: HYDROXYZINE HYDROCHLORIDE
     Indication: ANXIETY
     Dosage: ?          QUANTITY:90 TABLET(S);?
     Route: 048
     Dates: start: 20200617, end: 20200617

REACTIONS (8)
  - Depression [None]
  - Arthralgia [None]
  - Chest pain [None]
  - Muscle spasms [None]
  - Nasopharyngitis [None]
  - Nasal congestion [None]
  - Dizziness [None]
  - Musculoskeletal chest pain [None]

NARRATIVE: CASE EVENT DATE: 20200617
